FAERS Safety Report 6154171-X (Version None)
Quarter: 2009Q2

REPORT INFORMATION
  Report Type: 
  Country: None (occurrence: None)
  Receive Date: 20090414
  Receipt Date: 20090402
  Transmission Date: 20091009
  Serious: Yes (Hospitalization)
  Sender: FDA-Public Use
  Company Number: US-ROCHE-625659

PATIENT
  Sex: Male

DRUGS (2)
  1. PEG-INTERFERON A-2A (RO 25-8310) [Suspect]
     Indication: HEPATITIS C
     Dosage: FORM: PRE FILLED SYRINGE (PFS), PATIENT IN WEEK 19
     Route: 065
     Dates: start: 20081124
  2. RIBAVIRIN [Suspect]
     Indication: HEPATITIS C
     Dosage: DIVIDE DOSES, PATIENT IN WEEK 19
     Route: 065
     Dates: start: 20081124

REACTIONS (2)
  - MENTAL STATUS CHANGES [None]
  - WHITE BLOOD CELL COUNT DECREASED [None]
